FAERS Safety Report 5732607-3 (Version None)
Quarter: 2008Q2

REPORT INFORMATION
  Report Type: 
  Country: None (occurrence: None)
  Receive Date: 20080507
  Receipt Date: 20080424
  Transmission Date: 20081010
  Serious: Yes (Hospitalization)
  Sender: FDA-Public Use
  Company Number: 2008BI010841

PATIENT
  Age: 55 Year
  Sex: Female

DRUGS (1)
  1. TYSABRI [Suspect]
     Dosage: IV
     Route: 042
     Dates: start: 20071101

REACTIONS (6)
  - CHOKING [None]
  - FATIGUE [None]
  - HEART RATE INCREASED [None]
  - PALATAL DISORDER [None]
  - PANIC REACTION [None]
  - THYROID DISORDER [None]
